FAERS Safety Report 20821005 (Version 1)
Quarter: 2022Q2

REPORT INFORMATION
  Report Type: Report from Study
  Country: US (occurrence: US)
  Receive Date: 20220512
  Receipt Date: 20220512
  Transmission Date: 20220720
  Serious: No
  Sender: FDA-Public Use
  Company Number: US-NOVARTISTESTPH-NVSC2022US109768

PATIENT
  Sex: Female

DRUGS (1)
  1. COSENTYX [Suspect]
     Active Substance: SECUKINUMAB
     Indication: Product used for unknown indication
     Dosage: UNK
     Route: 065

REACTIONS (9)
  - Rash macular [Unknown]
  - Psoriasis [Unknown]
  - Condition aggravated [Unknown]
  - Acne [Unknown]
  - Phlebitis [Unknown]
  - Pain in extremity [Unknown]
  - Alopecia [Unknown]
  - Onychoclasis [Unknown]
  - Blood test abnormal [Unknown]
